FAERS Safety Report 21265262 (Version 1)
Quarter: 2022Q3

REPORT INFORMATION
  Report Type: Spontaneous
  Country: US (occurrence: US)
  Receive Date: 20220829
  Receipt Date: 20220829
  Transmission Date: 20221027
  Serious: No
  Sender: FDA-Public Use
  Company Number: US-GSKCCFUS-Case-01474250_AE-84286

PATIENT
  Sex: Female

DRUGS (1)
  1. BENLYSTA [Suspect]
     Active Substance: BELIMUMAB
     Indication: Product used for unknown indication
     Dosage: UNK

REACTIONS (5)
  - Injection site pain [Unknown]
  - Swelling [Unknown]
  - Erythema [Unknown]
  - Pruritus [Unknown]
  - Contusion [Unknown]

NARRATIVE: CASE EVENT DATE: 20220801
